FAERS Safety Report 6898269-7 (Version None)
Quarter: 2010Q3

REPORT INFORMATION
  Report Type: 
  Country: None (occurrence: None)
  Receive Date: 20100729
  Receipt Date: 20100720
  Transmission Date: 20110219
  Serious: Yes (Death, Other)
  Sender: FDA-Public Use
  Company Number: 1000015221

PATIENT
  Age: 48 Year
  Sex: Male

DRUGS (5)
  1. LEXAPRO [Suspect]
     Indication: DEPRESSION
     Dosage: (1 IN 1 D), ORAL
     Route: 048
     Dates: start: 20091101, end: 20100501
  2. FENTANYL CITRATE [Suspect]
     Indication: OSTEOPOROSIS
     Dates: start: 20070101, end: 20090901
  3. FENTANYL CITRATE [Suspect]
     Indication: OSTEOPOROSIS
     Dosage: 100 MCG (1 IN 1 D), TRANSDERMAL
     Route: 062
     Dates: start: 20090901, end: 20100501
  4. FENTANYL CITRATE [Suspect]
     Indication: OSTEOPOROSIS
     Dosage: 25 MCG (1 IN 1 D), TRANSDERMAL
     Route: 062
     Dates: start: 20091101, end: 20100501
  5. LAMICTAL [Suspect]
     Indication: DEPRESSION
     Dates: start: 20091101, end: 20100501

REACTIONS (8)
  - COMPLETED SUICIDE [None]
  - CONDITION AGGRAVATED [None]
  - DEPRESSION [None]
  - DRUG DEPENDENCE [None]
  - DRUG WITHDRAWAL SYNDROME [None]
  - GUN SHOT WOUND [None]
  - INTENTIONAL DRUG MISUSE [None]
  - LOSS OF CONSCIOUSNESS [None]
